FAERS Safety Report 24731228 (Version 2)
Quarter: 2025Q1

REPORT INFORMATION
  Report Type: Spontaneous
  Country: AU (occurrence: AU)
  Receive Date: 20241213
  Receipt Date: 20250311
  Transmission Date: 20250408
  Serious: Yes (Hospitalization)
  Sender: RANBAXY
  Company Number: AU-SUN PHARMACEUTICAL INDUSTRIES LTD-2024R1-484481

PATIENT
  Age: 37 Year
  Sex: Male

DRUGS (17)
  1. LENALIDOMIDE [Suspect]
     Active Substance: LENALIDOMIDE
     Indication: Marginal zone lymphoma
     Route: 048
     Dates: start: 20240903, end: 20240923
  2. RITUXIMAB [Suspect]
     Active Substance: RITUXIMAB
     Indication: Marginal zone lymphoma
     Route: 065
     Dates: start: 20240903
  3. RITUXIMAB [Suspect]
     Active Substance: RITUXIMAB
     Route: 065
     Dates: start: 20240910, end: 20240910
  4. BACTRIM [Concomitant]
     Active Substance: SULFAMETHOXAZOLE\TRIMETHOPRIM
     Indication: Prophylaxis
     Route: 048
     Dates: start: 20240903
  5. ACETAMINOPHEN\CODEINE PHOSPHATE [Concomitant]
     Active Substance: ACETAMINOPHEN\CODEINE PHOSPHATE
     Indication: Pain
     Route: 048
     Dates: start: 20240813, end: 20240821
  6. ALLOPURINOL [Concomitant]
     Active Substance: ALLOPURINOL
     Indication: Prophylaxis
     Route: 048
     Dates: start: 20240903
  7. ASPIRIN [Concomitant]
     Active Substance: ASPIRIN
     Indication: Prophylaxis
     Route: 048
     Dates: start: 20240903
  8. DIAZEPAM [Concomitant]
     Active Substance: DIAZEPAM
     Indication: Anxiety
     Route: 048
     Dates: start: 2021
  9. HYDROCORTISONE [Concomitant]
     Active Substance: HYDROCORTISONE
     Indication: Premedication
     Route: 042
     Dates: start: 20240903, end: 20240903
  10. HYDROCORTISONE [Concomitant]
     Active Substance: HYDROCORTISONE
     Indication: Infusion related reaction
     Route: 042
     Dates: start: 20240910, end: 20240910
  11. LORATADINE [Concomitant]
     Active Substance: LORATADINE
     Indication: Premedication
     Route: 048
     Dates: start: 20240903, end: 20240903
  12. LORATADINE [Concomitant]
     Active Substance: LORATADINE
     Route: 048
     Dates: start: 20240910, end: 20240910
  13. ACETAMINOPHEN [Concomitant]
     Active Substance: ACETAMINOPHEN
     Indication: Premedication
     Route: 048
     Dates: start: 2021
  14. ACETAMINOPHEN [Concomitant]
     Active Substance: ACETAMINOPHEN
     Indication: Headache
     Route: 048
     Dates: start: 20240903, end: 20240903
  15. ACETAMINOPHEN [Concomitant]
     Active Substance: ACETAMINOPHEN
     Route: 048
     Dates: start: 20240910, end: 20240910
  16. PROMETHAZINE HYDROCHLORIDE [Concomitant]
     Active Substance: PROMETHAZINE HYDROCHLORIDE
     Indication: Infusion related reaction
     Route: 042
     Dates: start: 20240903, end: 20240903
  17. VALACYCLOVIR HYDROCHLORIDE [Concomitant]
     Active Substance: VALACYCLOVIR HYDROCHLORIDE
     Indication: Prophylaxis
     Route: 048
     Dates: start: 20240903

REACTIONS (1)
  - Infection [Recovered/Resolved]

NARRATIVE: CASE EVENT DATE: 20240914
